FAERS Safety Report 8979244 (Version 4)
Quarter: 2013Q4

REPORT INFORMATION
  Report Type: Spontaneous
  Country: DE (occurrence: DE)
  Receive Date: 20121221
  Receipt Date: 20131126
  Transmission Date: 20140711
  Serious: Yes (Other)
  Sender: FDA-Public Use
  Company Number: DE-GLAXOSMITHKLINE-D0077472C

PATIENT
  Age: 32 Year
  Sex: Female
  Weight: 65 kg

DRUGS (3)
  1. ATMADISC [Suspect]
     Indication: ASTHMA
     Dosage: 300MCG TWICE PER DAY
     Route: 055
     Dates: start: 20090623, end: 201209
  2. SINGULAIR [Suspect]
     Indication: ASTHMA
     Dosage: 10MG PER DAY
     Route: 048
     Dates: start: 20090623, end: 201209
  3. EUTHYROX [Concomitant]
     Indication: HYPOTHYROIDISM
     Dosage: 75MCG PER DAY
     Route: 048
     Dates: start: 2005

REACTIONS (4)
  - Stillbirth [Unknown]
  - Abortion missed [Unknown]
  - Excoriation [Unknown]
  - Exposure during pregnancy [Unknown]
